FAERS Safety Report 5071323-0 (Version None)
Quarter: 2006Q3

REPORT INFORMATION
  Report Type: 
  Country: None (occurrence: None)
  Receive Date: 20060804
  Receipt Date: 20051201
  Transmission Date: 20061208
  Serious: No
  Sender: FDA-Public Use
  Company Number: US-AMGEN-US159868

PATIENT
  Sex: Male

DRUGS (13)
  1. ARANESP [Suspect]
     Indication: ANAEMIA
     Route: 058
     Dates: start: 20040413
  2. ADVIL [Concomitant]
  3. XENICAL [Concomitant]
  4. ASCORBIC ACID [Concomitant]
     Route: 048
  5. ACIPHEX [Concomitant]
  6. QUININE SULFATE [Concomitant]
  7. THALIDOMIDE [Concomitant]
     Route: 048
     Dates: start: 20041026
  8. TUSSIONEX [Concomitant]
  9. METOCLOPRAMIDE [Concomitant]
     Route: 048
  10. ANZEMET [Concomitant]
  11. DIOVAN HCT [Concomitant]
  12. METAMUCIL [Concomitant]
  13. PRILOSEC [Concomitant]

REACTIONS (2)
  - HYPERGAMMAGLOBULINAEMIA BENIGN MONOCLONAL [None]
  - INJECTION SITE HAEMORRHAGE [None]
